FAERS Safety Report 15065308 (Version 2)
Quarter: 2018Q3

REPORT INFORMATION
  Report Type: Report from Study
  Country: None (occurrence: NL)
  Receive Date: 20180626
  Receipt Date: 20180706
  Transmission Date: 20181010
  Serious: Yes (Death, Life-Threatening)
  Sender: FDA-Public Use
  Company Number: NL-ABBVIE-18K-114-2399354-00

PATIENT
  Age: 74 Year
  Sex: Female
  Weight: 32 kg

DRUGS (1)
  1. DUODOPA [Suspect]
     Active Substance: CARBIDOPA\LEVODOPA
     Indication: PARKINSON^S DISEASE
     Dosage: MD: 13, CD: 5.1, ED: 3.3
     Route: 050

REACTIONS (6)
  - Death [Fatal]
  - Fluid intake reduced [Unknown]
  - General physical health deterioration [Unknown]
  - Terminal state [Not Recovered/Not Resolved]
  - General physical health deterioration [Not Recovered/Not Resolved]
  - Hypophagia [Unknown]

NARRATIVE: CASE EVENT DATE: 20180626
